FAERS Safety Report 24726465 (Version 1)
Quarter: 2024Q4

REPORT INFORMATION
  Report Type: Spontaneous
  Country: ZA (occurrence: ZA)
  Receive Date: 20241212
  Receipt Date: 20241212
  Transmission Date: 20250114
  Serious: Yes (Hospitalization)
  Sender: BAYER HEALTHCARE PHARMACEUTICALS INC.
  Company Number: ZA-BAYER-2024A174150

PATIENT
  Age: 42 Year
  Sex: Female

DRUGS (5)
  1. ANGELIQ [Suspect]
     Active Substance: DROSPIRENONE\ESTRADIOL
     Indication: Menopause
     Dosage: 1 DF, QD
     Route: 048
  2. ESOMEPRAZOLE [Concomitant]
     Active Substance: ESOMEPRAZOLE
     Indication: Dyspepsia
     Dosage: 1 DF
     Route: 048
  3. CELEBREX [Concomitant]
     Active Substance: CELECOXIB
     Indication: Pain
     Dosage: 2 DF
     Route: 048
  4. CALCIUM\MENAQUINONE 6\VITAMIN D [Concomitant]
     Active Substance: CALCIUM\MENAQUINONE 6\VITAMIN D
     Dosage: 1 DF, QD
     Route: 048
  5. Synaleve [Concomitant]
     Indication: Osteoarthritis
     Dosage: 2 DF, TID
     Route: 048

REACTIONS (2)
  - Female genital operation [None]
  - Product use in unapproved indication [None]
